FAERS Safety Report 4345163-1 (Version None)
Quarter: 2004Q2

REPORT INFORMATION
  Report Type: 
  Country: None (occurrence: None)
  Receive Date: 20040420
  Receipt Date: 20040408
  Transmission Date: 20050107
  Serious: Yes (Death, Hospitalization)
  Sender: FDA-Public Use
  Company Number: HQWYE402108APR04

PATIENT
  Age: 90 Year
  Sex: Female

DRUGS (11)
  1. EUPANTOL    (PANTOPRAZOLE,  DELAYED RELEASE) [Suspect]
     Dosage: 20 MG 1X PER 1 DAY
     Route: 048
     Dates: start: 20040224, end: 20040229
  2. ASPIRIN [Concomitant]
  3. BREXIN ^EURO-LABOR^ (PIROXICAM BETADEX) [Concomitant]
  4. LASIX [Concomitant]
  5. ALDACTONE [Concomitant]
  6. CORDARONE [Concomitant]
  7. DIGOXIN [Concomitant]
  8. CACIT (CALCIUM CARBONATE/CITRIC ACID) [Concomitant]
  9. COLECALCIFEROL (COLECALCIFEROL) [Concomitant]
  10. STABLON (TIANEPTINE) [Concomitant]
  11. MOVICOL (MACROGOL/POTASSIUM CHLORIDE/SODIUM BICARBONATE/SODIUM CHLORID [Concomitant]

REACTIONS (13)
  - ABDOMINAL DISTENSION [None]
  - ANURIA [None]
  - ASCITES [None]
  - DISEASE PROGRESSION [None]
  - GENERALISED OEDEMA [None]
  - HAEMATOCRIT DECREASED [None]
  - HAEMOGLOBIN DECREASED [None]
  - HEPATORENAL SYNDROME [None]
  - HYPERKALAEMIA [None]
  - LOWER GASTROINTESTINAL HAEMORRHAGE [None]
  - PLEURAL EFFUSION [None]
  - RED BLOOD CELL COUNT DECREASED [None]
  - RENAL FAILURE [None]
